FAERS Safety Report 22334835 (Version 1)
Quarter: 2023Q2

REPORT INFORMATION
  Report Type: Spontaneous
  Country: US (occurrence: US)
  Receive Date: 20230518
  Receipt Date: 20230518
  Transmission Date: 20230722
  Serious: No
  Sender: FDA-Public Use
  Company Number: US-BAXTER-2023BAX021859

PATIENT
  Age: 54 Year
  Sex: Male

DRUGS (1)
  1. PENICILLIN G [Suspect]
     Active Substance: PENICILLIN G
     Dosage: AT AN UNREPORTED DOSE, AND FREQUENCY
     Route: 065

REACTIONS (1)
  - Drug hypersensitivity [Unknown]
